FAERS Safety Report 7795648-0 (Version None)
Quarter: 2011Q4

REPORT INFORMATION
  Report Type: 
  Country: None (occurrence: None)
  Receive Date: 20111004
  Receipt Date: 20110923
  Transmission Date: 20120403
  Serious: Yes (Hospitalization)
  Sender: FDA-Public Use
  Company Number: FR-GLAXOSMITHKLINE-B0699403A

PATIENT
  Sex: Male
  Weight: 76 kg

DRUGS (14)
  1. BISOPROLOL [Concomitant]
  2. ESCITALOPRAM [Concomitant]
  3. METOCLOPRAMIDE [Concomitant]
  4. TRAMADOL HCL [Concomitant]
  5. BEVACIZUMAB [Suspect]
     Indication: RENAL CANCER METASTATIC
     Dosage: 7.5MGK EVERY TWO WEEKS
     Route: 042
     Dates: start: 20101215, end: 20110111
  6. PERINDOPRIL ERBUMINE [Concomitant]
  7. MANIDIPINE [Concomitant]
  8. ACETAMINOPHEN [Concomitant]
  9. PAZOPANIB [Suspect]
     Indication: RENAL CANCER METASTATIC
     Dosage: 400MG PER DAY
     Route: 048
     Dates: start: 20101201, end: 20110125
  10. INSULIN [Concomitant]
  11. CLOPIDOGREL [Concomitant]
  12. ESOMEPRAZOLE MAGNESIUM [Concomitant]
  13. ALPRAZOLAM [Concomitant]
  14. ZOLPIDEM [Concomitant]

REACTIONS (6)
  - GENERAL PHYSICAL HEALTH DETERIORATION [None]
  - THROMBOSIS [None]
  - PROTEINURIA [None]
  - OEDEMA [None]
  - NEOPLASM PROGRESSION [None]
  - NEPHROTIC SYNDROME [None]
